FAERS Safety Report 10070342 (Version 1)
Quarter: 2014Q2

REPORT INFORMATION
  Report Type: Report from Study
  Country: DE (occurrence: DE)
  Receive Date: 20140410
  Receipt Date: 20140410
  Transmission Date: 20141212
  Serious: Yes (Other)
  Sender: FDA-Public Use
  Company Number: DE-SA-2014SA041942

PATIENT
  Age: 63 Year
  Sex: Female
  Weight: 75 kg

DRUGS (4)
  1. MULTAQ [Suspect]
     Indication: ATRIAL FIBRILLATION
     Dates: start: 201206, end: 201208
  2. METOPROLOL [Concomitant]
  3. BETA BLOCKING AGENTS [Concomitant]
     Dates: start: 2007
  4. ANTITHROMBOTIC AGENTS [Concomitant]
     Dates: start: 20120809

REACTIONS (1)
  - Atrial fibrillation [Unknown]
